FAERS Safety Report 18584330 (Version 1)
Quarter: 2020Q4

REPORT INFORMATION
  Report Type: Spontaneous
  Country: US (occurrence: US)
  Receive Date: 20201207
  Receipt Date: 20201207
  Transmission Date: 20210114
  Serious: Yes (Death)
  Sender: FDA-Public Use
  Company Number: US-ROCHE-2727719

PATIENT
  Age: 83 Year
  Sex: Female

DRUGS (12)
  1. OMEPRAZOLE. [Concomitant]
     Active Substance: OMEPRAZOLE
  2. WIXELA INHUB [Concomitant]
     Active Substance: FLUTICASONE PROPIONATE\SALMETEROL XINAFOATE
  3. BENZONATATE. [Concomitant]
     Active Substance: BENZONATATE
  4. FLUTICASONE. [Concomitant]
     Active Substance: FLUTICASONE
  5. FUROSEMIDE. [Concomitant]
     Active Substance: FUROSEMIDE
  6. ONDANSETRON [Concomitant]
     Active Substance: ONDANSETRON
  7. ESBRIET [Suspect]
     Active Substance: PIRFENIDONE
     Indication: IDIOPATHIC PULMONARY FIBROSIS
     Dosage: 3 TABS 3 TIMES A DAY; ONGOING: NO
     Route: 048
     Dates: start: 20180106
  8. LEVOTHYROXIN [Concomitant]
     Active Substance: LEVOTHYROXINE
  9. LIDOCAINE. [Concomitant]
     Active Substance: LIDOCAINE
  10. TRIAMCINOLONE [Concomitant]
     Active Substance: TRIAMCINOLONE
  11. CALCIUM D [Concomitant]
     Active Substance: CALCIUM\VITAMIN D
  12. ALBUTEROL. [Concomitant]
     Active Substance: ALBUTEROL

REACTIONS (1)
  - Death [Fatal]

NARRATIVE: CASE EVENT DATE: 20201204
